FAERS Safety Report 6607729-5 (Version None)
Quarter: 2010Q1

REPORT INFORMATION
  Report Type: 
  Country: None (occurrence: None)
  Receive Date: 20100301
  Receipt Date: 20100223
  Transmission Date: 20100710
  Serious: Yes (Hospitalization)
  Sender: FDA-Public Use
  Company Number: SE-JNJFOC-20100209846

PATIENT
  Age: 44 Year
  Sex: Female

DRUGS (4)
  1. REMICADE [Suspect]
     Indication: RHEUMATOID ARTHRITIS
     Route: 042
  2. REMICADE [Suspect]
     Route: 042
  3. METOJECT [Suspect]
     Indication: RHEUMATOID ARTHRITIS
     Route: 058
  4. METOJECT [Suspect]
     Route: 058

REACTIONS (1)
  - LUNG ADENOCARCINOMA [None]
